FAERS Safety Report 7889613-2 (Version None)
Quarter: 2011Q4

REPORT INFORMATION
  Report Type: 
  Country: None (occurrence: None)
  Receive Date: 20111103
  Receipt Date: 20110815
  Transmission Date: 20120403
  Serious: Yes (Other)
  Sender: FDA-Public Use
  Company Number: US-BRISTOL-MYERS SQUIBB COMPANY-15971096

PATIENT
  Age: 68 Year
  Sex: Female

DRUGS (1)
  1. KENALOG-40 [Suspect]
     Indication: RETINAL VEIN OCCLUSION
     Route: 031

REACTIONS (5)
  - HYPERTENSION [None]
  - TREMOR [None]
  - DIZZINESS [None]
  - VITREOUS FLOATERS [None]
  - VISUAL IMPAIRMENT [None]
